FAERS Safety Report 7002987-X (Version None)
Quarter: 2010Q3

REPORT INFORMATION
  Report Type: 
  Country: None (occurrence: None)
  Receive Date: 20100920
  Receipt Date: 20100310
  Transmission Date: 20110219
  Serious: No
  Sender: FDA-Public Use
  Company Number: US-ASTRAZENECA-2010SE10746

PATIENT
  Age: 42 Year
  Sex: Female
  Weight: 88.5 kg

DRUGS (1)
  1. SEROQUEL XR [Suspect]
     Indication: BIPOLAR DISORDER
     Route: 048
     Dates: start: 20060101, end: 20060101

REACTIONS (3)
  - HALLUCINATION [None]
  - HEADACHE [None]
  - VISION BLURRED [None]
